FAERS Safety Report 18259207 (Version 1)
Quarter: 2020Q3

REPORT INFORMATION
  Report Type: Spontaneous
  Country: IT (occurrence: IT)
  Receive Date: 20200911
  Receipt Date: 20200911
  Transmission Date: 20201103
  Serious: Yes (Other)
  Sender: FDA-Public Use
  Company Number: IT-B.I. PHARMACEUTICALS,INC./RIDGEFIELD-2020-BI-045137

PATIENT
  Age: 59 Year
  Sex: Male

DRUGS (3)
  1. CONGESCOR [Suspect]
     Active Substance: BISOPROLOL
     Indication: HYPERTENSION
  2. PRITOR PLUS [Suspect]
     Active Substance: TELMISARTAN
     Indication: HYPERTENSION
  3. PLAVIX [Suspect]
     Active Substance: CLOPIDOGREL BISULFATE
     Indication: PRODUCT USED FOR UNKNOWN INDICATION
     Dosage: DOSE: 75 (UNITS UNSPECIFIED)

REACTIONS (3)
  - Myocardial ischaemia [Unknown]
  - Anxiety [Unknown]
  - Ventricular extrasystoles [Unknown]
